FAERS Safety Report 25876034 (Version 5)
Quarter: 2025Q4

REPORT INFORMATION
  Report Type: Spontaneous
  Country: US (occurrence: US)
  Receive Date: 20251003
  Receipt Date: 20251103
  Transmission Date: 20260118
  Serious: Yes (Death, Hospitalization)
  Sender: ASCENDIS PHARMA
  Company Number: US-ASCENDIS PHARMA-2025US012044

PATIENT

DRUGS (22)
  1. YORVIPATH [Suspect]
     Active Substance: PALOPEGTERIPARATIDE
     Indication: Hypoparathyroidism
     Dosage: 30 MICROGRAM, QD
     Route: 065
     Dates: start: 20250318, end: 20251001
  2. CALCIUM CITRATE [Concomitant]
     Active Substance: CALCIUM CITRATE
     Indication: Hypocalcaemic seizure
     Dosage: 2 DOSAGE FORM, TID (400 MG OF ELEMENTAL CALCIUM))
     Route: 048
     Dates: start: 20250906, end: 20251008
  3. CALCIUM [Concomitant]
     Active Substance: CALCIUM
     Indication: Hypocalcaemic seizure
     Dosage: INFUSION
     Route: 042
     Dates: end: 202509
  4. CALCIUM [Concomitant]
     Active Substance: CALCIUM
     Indication: Hypocalcaemia
     Dosage: UNK
     Route: 048
     Dates: end: 202509
  5. ROCALTROL [Concomitant]
     Active Substance: CALCITRIOL
     Indication: Hypocalcaemic seizure
     Dosage: 0.25 MICROGRAM, BID
     Route: 048
     Dates: start: 20250906, end: 20251008
  6. NOLVADEX [Concomitant]
     Active Substance: TAMOXIFEN CITRATE
     Indication: HER2 positive breast cancer
     Dosage: 1 DOSAGE FORM, QD
     Route: 048
     Dates: end: 20250813
  7. TYLENOL [Concomitant]
     Active Substance: ACETAMINOPHEN
     Indication: Product used for unknown indication
     Dosage: 2 DOSAGE FORM, TID (TAKE 2 TABLETS BY MOUTH EVERY 8 HOURS)
     Route: 048
     Dates: start: 20250821
  8. ELIQUIS [Concomitant]
     Active Substance: APIXABAN
     Indication: Product used for unknown indication
     Dosage: 1 DOSAGE FORM, BID
     Route: 048
  9. KEFLEX [Concomitant]
     Active Substance: CEPHALEXIN
     Indication: Product used for unknown indication
     Dosage: 2 DOSAGE FORM, BID (FOR 7 DAYS)
     Route: 048
     Dates: start: 20250902, end: 20250909
  10. VITAMIN D3 [Concomitant]
     Active Substance: CHOLECALCIFEROL
     Indication: Product used for unknown indication
     Dosage: 2 DOSAGE FORM, QD (2000 UNITS)
     Route: 048
     Dates: start: 20250826
  11. LEXAPRO [Concomitant]
     Active Substance: ESCITALOPRAM OXALATE
     Indication: Product used for unknown indication
     Dosage: 1 DOSAGE FORM, QD
     Route: 048
     Dates: start: 20250109
  12. KEPPRA [Concomitant]
     Active Substance: LEVETIRACETAM
     Indication: Product used for unknown indication
     Dosage: 1 DOSAGE FORM, BID
     Route: 048
     Dates: start: 20250310
  13. SYNTHROID [Concomitant]
     Active Substance: LEVOTHYROXINE SODIUM
     Indication: Product used for unknown indication
     Dosage: 150 MCG, 1 DOSAGE FORM, QD (ON EMPTY STOMACH) FOR 6 DAY A WEEK
     Route: 048
     Dates: start: 20250725
  14. SYNTHROID [Concomitant]
     Active Substance: LEVOTHYROXINE SODIUM
     Dosage: 0.5 DOSAGE FORM, QD (ON EMPTY STOMACH) ON 7TH DAY A WEEK
     Route: 048
     Dates: end: 20251008
  15. ROXICODONE [Concomitant]
     Active Substance: OXYCODONE HYDROCHLORIDE
     Indication: Product used for unknown indication
     Dosage: 1 DOSAGE FORM EVERY 6 HOURS WITH SNACKS
     Route: 048
     Dates: start: 20250902
  16. MINIPRESS [Concomitant]
     Active Substance: PRAZOSIN HYDROCHLORIDE
     Indication: Product used for unknown indication
     Dosage: 1 MG, 2 DOSAGE FORM, QD (AT BEDTIME)
     Route: 048
  17. MINERALS\VITAMINS [Concomitant]
     Active Substance: MINERALS\VITAMINS
     Indication: Product used for unknown indication
     Dosage: 1 DOSAGE FORM, QD (27-0.8 MG)
     Route: 048
  18. OCTREOTIDE [Concomitant]
     Active Substance: OCTREOTIDE
     Indication: Product used for unknown indication
     Dosage: UNK
     Route: 065
  19. ASCORBIC ACID [Concomitant]
     Active Substance: ASCORBIC ACID
     Indication: Product used for unknown indication
     Route: 065
  20. CYCLOBENZAPRINE [Concomitant]
     Active Substance: CYCLOBENZAPRINE
     Indication: Product used for unknown indication
     Route: 065
  21. GABAPENTIN [Concomitant]
     Active Substance: GABAPENTIN
     Indication: Product used for unknown indication
     Route: 065
  22. ZOFRAN [Concomitant]
     Active Substance: ONDANSETRON HYDROCHLORIDE
     Indication: Product used for unknown indication
     Route: 065

REACTIONS (4)
  - Postoperative wound infection [Fatal]
  - Hypocalcaemia [Fatal]
  - Seizure [Fatal]
  - Hypocalcaemia [Not Recovered/Not Resolved]

NARRATIVE: CASE EVENT DATE: 20250822
